FAERS Safety Report 20520141 (Version 1)
Quarter: 2022Q1

REPORT INFORMATION
  Report Type: Spontaneous
  Country: US (occurrence: None)
  Receive Date: 20220225
  Receipt Date: 20220225
  Transmission Date: 20220424
  Serious: Yes (Death)
  Sender: FDA-Public Use
  Company Number: None

PATIENT
  Age: 14 Year
  Sex: Male

DRUGS (3)
  1. TOBRAMYCIN [Suspect]
     Active Substance: TOBRAMYCIN
     Indication: Chronic respiratory failure
     Dosage: OTHER QUANTITY : 300/5 MG/ML;?OTHER FREQUENCY : EVERY 12 HRS. 28 D;?
     Route: 055
     Dates: start: 20180726
  2. TOBRAMYCIN [Suspect]
     Active Substance: TOBRAMYCIN
     Indication: Hypoxia
  3. EPOGEN [Concomitant]
     Active Substance: ERYTHROPOIETIN

REACTIONS (1)
  - Death [None]

NARRATIVE: CASE EVENT DATE: 20220219
